FAERS Safety Report 9621703 (Version 2)
Quarter: 2013Q4

REPORT INFORMATION
  Report Type: Spontaneous
  Country: FR (occurrence: FR)
  Receive Date: 20131015
  Receipt Date: 20131209
  Transmission Date: 20140711
  Serious: Yes (Hospitalization)
  Sender: FDA-Public Use
  Company Number: FR-B.I. PHARMACEUTICALS,INC./RIDGEFIELD-2013-FF-02463FF

PATIENT
  Age: 85 Year
  Sex: Male
  Weight: 105 kg

DRUGS (9)
  1. PRADAXA [Suspect]
     Indication: ARRHYTHMIA
     Route: 048
     Dates: start: 20130327
  2. PRAVADUAL [Suspect]
     Indication: HYPERCHOLESTEROLAEMIA
     Route: 048
  3. TAMSULOSINE [Concomitant]
     Indication: PROSTATIC ADENOMA
     Route: 048
     Dates: start: 2000
  4. AVODART [Concomitant]
     Indication: PROSTATIC ADENOMA
     Route: 048
     Dates: start: 2007
  5. DETENSIEL [Concomitant]
     Indication: HYPERTENSION
     Route: 048
     Dates: start: 1993
  6. AMLOR [Concomitant]
     Indication: HYPERTENSION
     Dosage: 10 MG
     Route: 048
     Dates: start: 1993
  7. FUROSEMIDE [Concomitant]
     Indication: CARDIAC FAILURE
     Dosage: 80 MG
     Route: 048
     Dates: start: 2005
  8. APROVEL [Concomitant]
     Indication: CARDIAC FAILURE
     Dosage: 150 MG
     Route: 048
     Dates: start: 2006
  9. AMIODARONE [Concomitant]
     Indication: ARRHYTHMIA
     Dates: start: 2013

REACTIONS (1)
  - Iron deficiency anaemia [Not Recovered/Not Resolved]
